FAERS Safety Report 7269394-6 (Version None)
Quarter: 2011Q1

REPORT INFORMATION
  Report Type: 
  Country: None (occurrence: None)
  Receive Date: 20110202
  Receipt Date: 20110127
  Transmission Date: 20110831
  Serious: Yes (Disabling)
  Sender: FDA-Public Use
  Company Number: US-BRISTOL-MYERS SQUIBB COMPANY-15520521

PATIENT

DRUGS (1)
  1. AMPHOTERICIN B FOR INJECTION [Suspect]
     Dosage: INTRACAMERAL-ROA

REACTIONS (1)
  - BLINDNESS [None]
